FAERS Safety Report 9306957 (Version 1)
Quarter: 2013Q2

REPORT INFORMATION
  Report Type: Spontaneous
  Country: US (occurrence: US)
  Receive Date: 20130523
  Receipt Date: 20130523
  Transmission Date: 20140414
  Serious: No
  Sender: FDA-Public Use
  Company Number: US-AMGEN-USASP2013022115

PATIENT
  Age: 21 Year
  Sex: Female

DRUGS (3)
  1. EPOGEN [Suspect]
     Indication: RENAL FAILURE CHRONIC
     Dosage: 500 UNITS/KG/DIALYSIS
  2. ARANESP [Suspect]
     Dosage: UNK
  3. PROCRIT [Suspect]
     Dosage: UNK

REACTIONS (5)
  - Chest pain [Unknown]
  - Musculoskeletal stiffness [Unknown]
  - Haemoglobin abnormal [Unknown]
  - Myalgia [Unknown]
  - Headache [Unknown]
